FAERS Safety Report 16978801 (Version 1)
Quarter: 2019Q4

REPORT INFORMATION
  Report Type: Spontaneous
  Country: US (occurrence: US)
  Receive Date: 20190916
  Receipt Date: 20190916
  Transmission Date: 20200122
  Serious: No
  Sender: FDA-Public Use
  Company Number: None

PATIENT
  Age: 64 Year
  Sex: Female

DRUGS (1)
  1. TACROLIMUS CAP 1MG [Suspect]
     Active Substance: TACROLIMUS
     Route: 048
     Dates: start: 201803

REACTIONS (6)
  - Tremor [None]
  - Rash [None]
  - Pyrexia [None]
  - Diarrhoea [None]
  - Heart rate [None]
  - Constipation [None]

NARRATIVE: CASE EVENT DATE: 20190916
